FAERS Safety Report 12266262 (Version 1)
Quarter: 2016Q2

REPORT INFORMATION
  Report Type: Spontaneous
  Country: US (occurrence: None)
  Receive Date: 20160413
  Receipt Date: 20160413
  Transmission Date: 20160815
  Serious: Yes (Disabling)
  Sender: FDA-Public Use
  Company Number: None

PATIENT
  Age: 39 Year
  Sex: Female
  Weight: 67.59 kg

DRUGS (1)
  1. GENERIC KEPPRA [Suspect]
     Active Substance: LEVETIRACETAM
     Indication: EPILEPSY
     Route: 048
     Dates: start: 20160408, end: 20160408

REACTIONS (6)
  - Anger [None]
  - Suicidal ideation [None]
  - Anxiety [None]
  - Depression [None]
  - Panic reaction [None]
  - Crying [None]

NARRATIVE: CASE EVENT DATE: 20160411
